FAERS Safety Report 8828100 (Version 1)
Quarter: 2012Q4

REPORT INFORMATION
  Report Type: 
  Country: US (occurrence: US)
  Receive Date: 20121005
  Receipt Date: 20121005
  Transmission Date: 20130627
  Serious: Yes (Hospitalization, Other)
  Sender: FDA-Public Use
  Company Number: US-PFIZER INC-2012244983

PATIENT

DRUGS (3)
  1. CELEBREX [Suspect]
     Dosage: UNK
  2. ALEVE [Suspect]
     Dosage: UNK
  3. ASPIRIN [Suspect]
     Dosage: 81 mg

REACTIONS (1)
  - Upper gastrointestinal haemorrhage [Unknown]
